FAERS Safety Report 19098367 (Version 1)
Quarter: 2021Q2

REPORT INFORMATION
  Report Type: Spontaneous
  Country: IT (occurrence: IT)
  Receive Date: 20210406
  Receipt Date: 20210406
  Transmission Date: 20210717
  Serious: Yes (Other)
  Sender: FDA-Public Use
  Company Number: IT-ASTRAZENECA-2021A205739

PATIENT
  Age: 60 Year
  Sex: Male

DRUGS (1)
  1. OSIMERTINIB. [Suspect]
     Active Substance: OSIMERTINIB
     Indication: LUNG ADENOCARCINOMA
     Route: 048
     Dates: end: 201911

REACTIONS (4)
  - Acquired gene mutation [Recovered/Resolved]
  - Skin toxicity [Unknown]
  - Malignant neoplasm progression [Recovering/Resolving]
  - Drug resistance [Unknown]

NARRATIVE: CASE EVENT DATE: 201910
